APPROVED DRUG PRODUCT: PARICALCITOL
Active Ingredient: PARICALCITOL
Strength: 2MCG
Dosage Form/Route: CAPSULE;ORAL
Application: A206710 | Product #002
Applicant: LOTUS PHARMACEUTICAL CO LTD NANTOU PLANT
Approved: Feb 24, 2016 | RLD: No | RS: No | Type: DISCN